FAERS Safety Report 25777773 (Version 1)
Quarter: 2025Q3

REPORT INFORMATION
  Report Type: Spontaneous
  Country: US (occurrence: US)
  Receive Date: 20250909
  Receipt Date: 20250909
  Transmission Date: 20251020
  Serious: No
  Sender: ROCHE
  Company Number: US-ROCHE-10000380356

PATIENT
  Sex: Female

DRUGS (1)
  1. XOLAIR [Suspect]
     Active Substance: OMALIZUMAB
     Indication: Hypersensitivity
     Dosage: LAST DOSE WAS RECEIVED 29-JUL-2025.
     Route: 058

REACTIONS (2)
  - Accidental exposure to product [Unknown]
  - Malaise [Unknown]
